FAERS Safety Report 11258277 (Version 2)
Quarter: 2015Q3

REPORT INFORMATION
  Report Type: Report from Study
  Country: CA (occurrence: CA)
  Receive Date: 20150710
  Receipt Date: 20150713
  Transmission Date: 20151125
  Serious: No
  Sender: FDA-Public Use
  Company Number: CA-ROCHE-1604243

PATIENT
  Age: 83 Year
  Sex: Male

DRUGS (22)
  1. ESBRIET [Suspect]
     Active Substance: PIRFENIDONE
     Indication: IDIOPATHIC PULMONARY FIBROSIS
     Route: 048
     Dates: start: 20131118
  2. ESBRIET [Suspect]
     Active Substance: PIRFENIDONE
     Route: 048
     Dates: start: 20131202
  3. ESBRIET [Suspect]
     Active Substance: PIRFENIDONE
     Dosage: 267MG-267MG-534MG
     Route: 048
     Dates: start: 20140218
  4. ESBRIET [Suspect]
     Active Substance: PIRFENIDONE
     Dosage: 267MG-534MG-267MG
     Route: 048
     Dates: start: 20140320
  5. ESBRIET [Suspect]
     Active Substance: PIRFENIDONE
     Dosage: 267MG-534MG-267MG
     Route: 048
     Dates: start: 20140728
  6. ESBRIET [Suspect]
     Active Substance: PIRFENIDONE
     Route: 048
     Dates: start: 20141208
  7. ACETYLSALICYLIC ACID [Concomitant]
     Active Substance: ASPIRIN
  8. ESBRIET [Suspect]
     Active Substance: PIRFENIDONE
     Route: 048
     Dates: start: 20140204
  9. ESBRIET [Suspect]
     Active Substance: PIRFENIDONE
     Route: 048
     Dates: start: 20140220
  10. ESBRIET [Suspect]
     Active Substance: PIRFENIDONE
     Route: 048
     Dates: start: 20131125
  11. ESBRIET [Suspect]
     Active Substance: PIRFENIDONE
     Route: 048
     Dates: start: 20140604
  12. ESBRIET [Suspect]
     Active Substance: PIRFENIDONE
     Route: 048
     Dates: start: 20140905
  13. ESBRIET [Suspect]
     Active Substance: PIRFENIDONE
     Route: 048
     Dates: start: 20140514
  14. ESBRIET [Suspect]
     Active Substance: PIRFENIDONE
     Route: 048
     Dates: start: 20150302
  15. CRESTOR [Concomitant]
     Active Substance: ROSUVASTATIN CALCIUM
  16. ESBRIET [Suspect]
     Active Substance: PIRFENIDONE
     Dosage: 267MG-534MG-267MG
     Route: 048
     Dates: start: 20150105
  17. ESBRIET [Suspect]
     Active Substance: PIRFENIDONE
     Route: 048
     Dates: start: 20131204
  18. ESBRIET [Suspect]
     Active Substance: PIRFENIDONE
     Route: 048
     Dates: start: 20140222
  19. ESBRIET [Suspect]
     Active Substance: PIRFENIDONE
     Dosage: 267MG-534MG-534MG
     Route: 048
     Dates: start: 20140829
  20. TECTA [Concomitant]
     Active Substance: PANTOPRAZOLE MAGNESIUM
  21. IBUPROFEN. [Concomitant]
     Active Substance: IBUPROFEN
  22. LORAZEPAM. [Concomitant]
     Active Substance: LORAZEPAM

REACTIONS (1)
  - Throat irritation [Not Recovered/Not Resolved]

NARRATIVE: CASE EVENT DATE: 20150629
